FAERS Safety Report 5627427-4 (Version None)
Quarter: 2008Q1

REPORT INFORMATION
  Report Type: 
  Country: None (occurrence: None)
  Receive Date: 20080214
  Receipt Date: 20080214
  Transmission Date: 20080703
  Serious: Yes (Life-Threatening, Hospitalization)
  Sender: FDA-Public Use
  Company Number: None

PATIENT
  Age: 51 Year
  Sex: Female
  Weight: 94.8018 kg

DRUGS (1)
  1. ZOMIG [Suspect]
     Indication: MIGRAINE
     Dosage: 2.5MG ONCE PO
     Route: 048
     Dates: start: 20080128, end: 20080128

REACTIONS (2)
  - ACUTE MYOCARDIAL INFARCTION [None]
  - NO REACTION ON PREVIOUS EXPOSURE TO DRUG [None]
